FAERS Safety Report 6788351-7 (Version None)
Quarter: 2010Q2

REPORT INFORMATION
  Report Type: 
  Country: None (occurrence: None)
  Receive Date: 20100623
  Receipt Date: 20080328
  Transmission Date: 20101027
  Serious: Yes (Other)
  Sender: FDA-Public Use
  Company Number: US-PFIZER INC-2008014521

PATIENT
  Sex: Male
  Weight: 91 kg

DRUGS (12)
  1. SUTENT [Suspect]
     Indication: RENAL CELL CARCINOMA
     Route: 048
     Dates: start: 20060901
  2. SUTENT [Suspect]
  3. FOLTX [Concomitant]
  4. TOPROL-XL [Concomitant]
  5. CRESTOR [Concomitant]
  6. TAMSULOSIN HYDROCHLORIDE [Concomitant]
  7. OMACOR [Concomitant]
  8. ALL OTHER THERAPEUTIC PRODUCTS [Concomitant]
  9. GLIPIZIDE [Concomitant]
  10. ZETIA [Concomitant]
  11. NORVASC [Concomitant]
  12. ACETYLSALICYLIC ACID [Concomitant]

REACTIONS (6)
  - DYSGEUSIA [None]
  - ERECTILE DYSFUNCTION [None]
  - FATIGUE [None]
  - HAIR COLOUR CHANGES [None]
  - UPPER RESPIRATORY TRACT INFECTION [None]
  - YELLOW SKIN [None]
